APPROVED DRUG PRODUCT: MAXIBOLIN
Active Ingredient: ETHYLESTRENOL
Strength: 2MG/5ML
Dosage Form/Route: ELIXIR;ORAL
Application: N014006 | Product #002
Applicant: ORGANON USA INC
Approved: Approved Prior to Jan 1, 1982 | RLD: No | RS: No | Type: DISCN